FAERS Safety Report 6349746-9 (Version None)
Quarter: 2009Q3

REPORT INFORMATION
  Report Type: 
  Country: None (occurrence: None)
  Receive Date: 20090911
  Receipt Date: 20090909
  Transmission Date: 20100115
  Serious: Yes (Death)
  Sender: FDA-Public Use
  Company Number: PHHY2009MX38635

PATIENT
  Age: 96 Year
  Sex: Female

DRUGS (1)
  1. DIOVAN HCT [Suspect]
     Indication: HYPERTENSION
     Dosage: TABLET (80/12.5 MG) PER DAY
     Route: 048
     Dates: start: 20060301

REACTIONS (2)
  - CARDIAC ARREST [None]
  - UNEVALUABLE EVENT [None]
